FAERS Safety Report 4394756-4 (Version None)
Quarter: 2004Q3

REPORT INFORMATION
  Report Type: 
  Country: None (occurrence: None)
  Receive Date: 20040707
  Receipt Date: 20040622
  Transmission Date: 20050211
  Serious: Yes (Hospitalization)
  Sender: FDA-Public Use
  Company Number: 207514

PATIENT
  Age: 42 Year
  Sex: Female

DRUGS (10)
  1. RITUXAN [Suspect]
     Indication: SYSTEMIC LUPUS ERYTHEMATOSUS
     Dosage: 375 MG/M2, 1/WEEK, INTRAVENOUS
     Route: 042
     Dates: start: 20040105, end: 20040126
  2. PREDNISONE TAB [Concomitant]
  3. MYCOPHENOLATE MOFETIL (MYCOPHENOLATE MOFETIL) [Concomitant]
  4. CYCLOBENZAPRINE (CYCLOBENZAPRINE HYDROCHLORIDE) [Concomitant]
  5. OMEPRAZOLE [Concomitant]
  6. FOLATE (FOLATE SODIUM) [Concomitant]
  7. EPOETIN NOS (EPOETIN NOS) [Concomitant]
  8. PERCOCET [Concomitant]
  9. CALCIUM/VITAMIN D (CHOLECALCIFEROL, CALCIUM NOS) [Concomitant]
  10. ACE-INHIBITOR (ANGIOTENSIN-CONVERTING ENZYME INHIBITORS) [Concomitant]

REACTIONS (8)
  - BLOOD TRIGLYCERIDES INCREASED [None]
  - MENINGITIS [None]
  - MENINGITIS ASEPTIC [None]
  - MENINGITIS BACTERIAL [None]
  - MENINGITIS VIRAL [None]
  - OESOPHAGEAL CANDIDIASIS [None]
  - PANCREATITIS ACUTE [None]
  - STAPHYLOCOCCAL INFECTION [None]
